FAERS Safety Report 5532810-1 (Version None)
Quarter: 2007Q4

REPORT INFORMATION
  Report Type: 
  Country: None (occurrence: None)
  Receive Date: 20071130
  Receipt Date: 20071130
  Transmission Date: 20080405
  Serious: Yes (Hospitalization)
  Sender: FDA-Public Use
  Company Number: None

PATIENT
  Age: 67 Year
  Sex: Female
  Weight: 139.3 kg

DRUGS (1)
  1. ZOSYN [Suspect]
     Dosage: 3.375 EVERY 6 HOURS IV
     Route: 042

REACTIONS (1)
  - NEPHRITIS INTERSTITIAL [None]
